FAERS Safety Report 12687368 (Version 1)
Quarter: 2016Q3

REPORT INFORMATION
  Report Type: Spontaneous
  Country: US (occurrence: US)
  Receive Date: 20160825
  Receipt Date: 20160825
  Transmission Date: 20161109
  Serious: Yes (Hospitalization)
  Sender: FDA-Public Use
  Company Number: US-NOVOPROD-470952

PATIENT
  Sex: Male

DRUGS (2)
  1. VICTOZA [Suspect]
     Active Substance: LIRAGLUTIDE
     Indication: WEIGHT DECREASED
     Dosage: 1.8 MG, QD
     Route: 058
     Dates: end: 201508
  2. NORDITROPIN [Concomitant]
     Active Substance: SOMATROPIN
     Indication: PRODUCT USED FOR UNKNOWN INDICATION
     Dosage: UNK UNK, QD

REACTIONS (5)
  - Glycosylated haemoglobin increased [Not Recovered/Not Resolved]
  - Impaired gastric emptying [Unknown]
  - Faecaloma [Unknown]
  - Off label use [Unknown]
  - Constipation [Unknown]
